FAERS Safety Report 4339774-7 (Version None)
Quarter: 2004Q2

REPORT INFORMATION
  Report Type: 
  Country: None (occurrence: None)
  Receive Date: 20040416
  Receipt Date: 20040115
  Transmission Date: 20050107
  Serious: Yes (Hospitalization)
  Sender: FDA-Public Use
  Company Number: PHHO2004US01139

PATIENT
  Age: 63 Year
  Sex: Male

DRUGS (18)
  1. FTY720 VS MYCOPHENOLATE MOFETIL [Suspect]
     Indication: RENAL TRANSPLANT
     Dosage: CODE NOT BROKEN
     Route: 048
     Dates: start: 20031107
  2. SOLU-MEDROL [Suspect]
     Indication: RENAL TRANSPLANT
     Dosage: 500 MG / DAY
     Route: 048
     Dates: start: 20031107, end: 20031107
  3. SOLU-MEDROL [Suspect]
     Dosage: 200 MG / DAY
     Route: 048
     Dates: start: 20031108, end: 20031108
  4. SOLU-MEDROL [Suspect]
     Dosage: 180 MG / DAY
     Route: 048
     Dates: start: 20031109
  5. PREDNISOLONE [Suspect]
     Indication: RENAL TRANSPLANT
     Dosage: 200 MG / DAY
     Route: 048
     Dates: start: 20031110, end: 20031110
  6. PREDNISOLONE [Suspect]
     Dosage: 150 MG / DAY
     Route: 048
     Dates: start: 20031111, end: 20031111
  7. PREDNISOLONE [Suspect]
     Dosage: 100 MG / DAY
     Route: 048
     Dates: start: 20031112, end: 20031112
  8. PREDNISOLONE [Suspect]
     Dosage: 75 MG / DAY
     Route: 048
     Dates: start: 20031113
  9. LANTUS [Concomitant]
     Indication: DIABETES MELLITUS
  10. NEORAL [Suspect]
     Indication: RENAL TRANSPLANT
     Dosage: 700 MG / DAY
     Route: 048
     Dates: start: 20031107, end: 20031107
  11. NEORAL [Suspect]
     Dosage: 350 MG, BID
     Route: 048
     Dates: start: 20031108, end: 20031110
  12. NEORAL [Suspect]
     Dosage: 400 MG / DAY
     Route: 048
     Dates: start: 20031111, end: 20031111
  13. NEORAL [Suspect]
     Dosage: 250 MG, BID
     Route: 048
     Dates: start: 20031112, end: 20031113
  14. NEORAL [Suspect]
     Dosage: 525 MG / DAY
     Route: 048
     Dates: start: 20031114, end: 20031118
  15. NEORAL [Suspect]
     Dosage: 500 MG / DAY
     Route: 048
     Dates: start: 20031119, end: 20031119
  16. NEORAL [Suspect]
     Dosage: 225 MG, BID
     Route: 048
     Dates: start: 20031120, end: 20031120
  17. NEORAL [Suspect]
     Dosage: 425 MG / DAY
     Route: 048
     Dates: start: 20031121, end: 20031121
  18. NEORAL [Suspect]
     Dosage: 200 MG, BID
     Route: 048
     Dates: start: 20031122, end: 20031208

REACTIONS (3)
  - DIABETES MELLITUS [None]
  - DIABETES MELLITUS INSULIN-DEPENDENT [None]
  - DISEASE PROGRESSION [None]
